FAERS Safety Report 17588560 (Version 1)
Quarter: 2020Q1

REPORT INFORMATION
  Report Type: Report from Study
  Country: None (occurrence: US)
  Receive Date: 20200327
  Receipt Date: 20200327
  Transmission Date: 20200409
  Serious: Yes (Other)
  Sender: FDA-Public Use
  Company Number: US-ABBVIE-20K-163-3338859-00

PATIENT
  Sex: Male

DRUGS (1)
  1. HUMIRA [Suspect]
     Active Substance: ADALIMUMAB
     Indication: COLITIS ULCERATIVE
     Route: 058

REACTIONS (5)
  - Stress [Not Recovered/Not Resolved]
  - Influenza [Recovered/Resolved]
  - Loss of consciousness [Recovered/Resolved]
  - Bronchitis [Recovered/Resolved]
  - Colitis [Not Recovered/Not Resolved]
